FAERS Safety Report 25340428 (Version 2)
Quarter: 2025Q2

REPORT INFORMATION
  Report Type: Spontaneous
  Country: US (occurrence: US)
  Receive Date: 20250521
  Receipt Date: 20250627
  Transmission Date: 20250716
  Serious: Yes (Hospitalization)
  Sender: CSL BEHRING
  Company Number: US-BEH-2025205420

PATIENT
  Sex: Male

DRUGS (3)
  1. ZEMAIRA [Suspect]
     Active Substance: .ALPHA.1-PROTEINASE INHIBITOR HUMAN
     Indication: Alpha-1 antitrypsin deficiency
     Dosage: 4300 MG, QW (3870-4730)
     Route: 042
     Dates: start: 202008
  2. OHTUVAYRE [Concomitant]
     Active Substance: ENSIFENTRINE
     Indication: Chronic obstructive pulmonary disease
  3. EPINEPHRINE [Concomitant]
     Active Substance: EPINEPHRINE

REACTIONS (8)
  - Heart rate increased [Unknown]
  - Cough [Unknown]
  - Dyspnoea [Unknown]
  - Blood gases abnormal [Unknown]
  - Dyspnoea [Unknown]
  - Heart rate irregular [Unknown]
  - Treatment noncompliance [Unknown]
  - Intentional dose omission [Unknown]
